FAERS Safety Report 5464972-9 (Version None)
Quarter: 2007Q3

REPORT INFORMATION
  Report Type: 
  Country: None (occurrence: None)
  Receive Date: 20070820
  Receipt Date: 20070522
  Transmission Date: 20080115
  Serious: No
  Sender: FDA-Public Use
  Company Number: TPA2007A01145

PATIENT

DRUGS (1)
  1. ROZEREM [Suspect]

REACTIONS (2)
  - DYSPNOEA [None]
  - URTICARIA [None]
